FAERS Safety Report 24783720 (Version 1)
Quarter: 2024Q4

REPORT INFORMATION
  Report Type: Spontaneous
  Country: CN (occurrence: CN)
  Receive Date: 20241227
  Receipt Date: 20241227
  Transmission Date: 20250114
  Serious: Yes (Other)
  Sender: PFIZER
  Company Number: CN-PFIZER INC-PV202400167337

PATIENT
  Age: 74 Year
  Sex: Male
  Weight: 50 kg

DRUGS (1)
  1. LINEZOLID [Suspect]
     Active Substance: LINEZOLID
     Indication: Infection
     Dosage: 0.6 G, 2X/DAY
     Route: 048
     Dates: start: 20241205, end: 20241206

REACTIONS (4)
  - Rash [Recovering/Resolving]
  - Erythema [Recovering/Resolving]
  - Swelling [Recovering/Resolving]
  - Pruritus [Recovering/Resolving]

NARRATIVE: CASE EVENT DATE: 20241206
